FAERS Safety Report 8299260-9 (Version None)
Quarter: 2012Q2

REPORT INFORMATION
  Report Type: 
  Country: None (occurrence: None)
  Receive Date: 20120419
  Receipt Date: 20120409
  Transmission Date: 20120825
  Serious: Yes (Hospitalization)
  Sender: FDA-Public Use
  Company Number: US-JNJFOC-20110410268

PATIENT
  Sex: Male
  Weight: 66.8 kg

DRUGS (7)
  1. REMICADE [Suspect]
     Route: 042
     Dates: start: 20100920
  2. OXYCODONE AND ACETAMINOPHEN [Concomitant]
  3. PROBIOTICS [Concomitant]
  4. ANTIBIOTICS [Concomitant]
     Indication: INFLAMMATORY BOWEL DISEASE
  5. REMICADE [Suspect]
     Indication: CROHN'S DISEASE
     Route: 042
     Dates: start: 20100621
  6. HUMIRA [Concomitant]
     Dates: start: 20101216
  7. HUMIRA [Concomitant]
     Dates: start: 20110420

REACTIONS (2)
  - CROHN'S DISEASE [None]
  - ANAL FISTULA [None]
